FAERS Safety Report 23946166 (Version 1)
Quarter: 2024Q2

REPORT INFORMATION
  Report Type: Spontaneous
  Country: US (occurrence: US)
  Receive Date: 20240606
  Receipt Date: 20240606
  Transmission Date: 20240716
  Serious: No
  Sender: FDA-Public Use
  Company Number: US-AVEVA-000667

PATIENT
  Sex: Female

DRUGS (2)
  1. NICOTINE [Suspect]
     Active Substance: NICOTINE
     Indication: Product used for unknown indication
     Dosage: UNK (21 MILLIGRAM/DAY)
     Route: 062
  2. NICOTINE [Suspect]
     Active Substance: NICOTINE
     Indication: Product used for unknown indication
     Dosage: UNK (21 MILLIGRAM/DAY)
     Route: 062

REACTIONS (3)
  - Pruritus [Unknown]
  - Erythema [Unknown]
  - Product adhesion issue [Unknown]
